FAERS Safety Report 21243151 (Version 1)
Quarter: 2022Q3

REPORT INFORMATION
  Report Type: Spontaneous
  Country: GB (occurrence: GB)
  Receive Date: 20220823
  Receipt Date: 20220823
  Transmission Date: 20221027
  Serious: Yes (Other)
  Sender: FDA-Public Use
  Company Number: None

PATIENT
  Sex: Female

DRUGS (3)
  1. HYDROCORTISONE SODIUM SUCCINATE [Suspect]
     Active Substance: HYDROCORTISONE SODIUM SUCCINATE
  2. BETNOVATE [Suspect]
     Active Substance: BETAMETHASONE
     Dosage: UNK
  3. EUMOVATE [Suspect]
     Active Substance: CLOBETASONE BUTYRATE
     Dosage: UNK

REACTIONS (13)
  - Elephantiasis [Unknown]
  - Rash erythematous [Unknown]
  - Skin burning sensation [Unknown]
  - Skin exfoliation [Unknown]
  - Dry skin [Unknown]
  - Lymphadenopathy [Unknown]
  - Insomnia [Unknown]
  - Skin weeping [Unknown]
  - Neuralgia [Unknown]
  - Pruritus [Unknown]
  - Skin swelling [Unknown]
  - Night sweats [Unknown]
  - Topical steroid withdrawal reaction [Unknown]
